FAERS Safety Report 4909165-6 (Version None)
Quarter: 2006Q1

REPORT INFORMATION
  Report Type: 
  Country: None (occurrence: None)
  Receive Date: 20060213
  Receipt Date: 20060105
  Transmission Date: 20060701
  Serious: Yes (Hospitalization)
  Sender: FDA-Public Use
  Company Number: US-BRISTOL-MYERS SQUIBB COMPANY-13237821

PATIENT
  Age: 48 Year
  Sex: Male

DRUGS (6)
  1. ERBITUX [Suspect]
     Indication: NON-SMALL CELL LUNG CANCER
     Dosage: THERAPY START DATE 27-SEP-2005.
     Route: 042
     Dates: start: 20051122, end: 20051122
  2. CARBOPLATIN [Suspect]
     Indication: NON-SMALL CELL LUNG CANCER
     Dosage: THERAPY START DATE 11-OCT-05. ADMINISTERED AT AUC 6.
     Route: 042
     Dates: start: 20051122, end: 20051122
  3. TAXOL [Suspect]
     Indication: NON-SMALL CELL LUNG CANCER
     Dosage: THERAPY START DATE 11-OCT-05. 6TH COURSE.
     Route: 042
     Dates: start: 20051122, end: 20051122
  4. DURAGESIC-100 [Concomitant]
     Dates: start: 20050801
  5. LOVENOX [Concomitant]
     Dates: start: 20051123, end: 20051128
  6. COUMADIN [Concomitant]
     Dates: start: 20051125

REACTIONS (1)
  - RADIATION PNEUMONITIS [None]
